FAERS Safety Report 20802372 (Version 1)
Quarter: 2022Q2

REPORT INFORMATION
  Report Type: Spontaneous
  Country: US (occurrence: None)
  Receive Date: 20220507
  Receipt Date: 20220507
  Transmission Date: 20220721
  Serious: Yes (Hospitalization)
  Sender: FDA-Public Use
  Company Number: None

PATIENT
  Age: 75 Year
  Sex: Female
  Weight: 54.5 kg

DRUGS (3)
  1. FASLODEX [Suspect]
     Active Substance: FULVESTRANT
     Dates: end: 20220407
  2. FEMARA [Suspect]
     Active Substance: LETROZOLE
     Dates: end: 20220504
  3. PALBOCICLIB [Suspect]
     Active Substance: PALBOCICLIB
     Dates: end: 20220504

REACTIONS (4)
  - Fatigue [None]
  - Blood creatinine increased [None]
  - Hypercalcaemia [None]
  - Metastases to bone [None]

NARRATIVE: CASE EVENT DATE: 20220503
